FAERS Safety Report 23262151 (Version 1)
Quarter: 2023Q4

REPORT INFORMATION
  Report Type: Spontaneous
  Country: US (occurrence: None)
  Receive Date: 20231204
  Receipt Date: 20231204
  Transmission Date: 20240110
  Serious: Yes (Hospitalization)
  Sender: FDA-Public Use
  Company Number: None

PATIENT
  Age: 67 Year
  Sex: Female

DRUGS (7)
  1. AMBRISENTAN [Suspect]
     Active Substance: AMBRISENTAN
     Indication: Pulmonary hypertension
     Dosage: 10MG QD ORAL?
     Route: 048
     Dates: start: 20201210
  2. TADALAFIL [Concomitant]
     Active Substance: TADALAFIL
  3. PANTOPRAZOLE [Concomitant]
  4. SPIRONOLACTONE [Concomitant]
     Active Substance: SPIRONOLACTONE
  5. TORSEMIDE [Concomitant]
  6. COLCHICINE [Concomitant]
     Active Substance: COLCHICINE
  7. BENZONATATE [Concomitant]

REACTIONS (2)
  - Fall [None]
  - Subdural haematoma [None]

NARRATIVE: CASE EVENT DATE: 20231105
